FAERS Safety Report 16704029 (Version 6)
Quarter: 2022Q4

REPORT INFORMATION
  Report Type: Spontaneous
  Country: US (occurrence: None)
  Receive Date: 20190814
  Receipt Date: 20221026
  Transmission Date: 20230113
  Serious: Yes (Disabling, Other)
  Sender: FDA-Public Use
  Company Number: 2019SF13949

PATIENT
  Age: 22487 Day
  Sex: Female
  Weight: 101.2 kg

DRUGS (84)
  1. NEXIUM [Suspect]
     Active Substance: ESOMEPRAZOLE MAGNESIUM
     Indication: Gastrooesophageal reflux disease
     Route: 048
     Dates: start: 2003
  2. NEXIUM [Suspect]
     Active Substance: ESOMEPRAZOLE MAGNESIUM
     Indication: Gastrooesophageal reflux disease
     Route: 048
     Dates: start: 20180419
  3. NEXIUM [Suspect]
     Active Substance: ESOMEPRAZOLE MAGNESIUM
     Indication: Gastrooesophageal reflux disease
     Dosage: GENERIC
     Route: 048
     Dates: start: 20171005
  4. NEXIUM [Suspect]
     Active Substance: ESOMEPRAZOLE MAGNESIUM
     Indication: Gastrooesophageal reflux disease
     Dosage: GENERIC
     Route: 048
     Dates: start: 20170829
  5. NEXIUM [Suspect]
     Active Substance: ESOMEPRAZOLE MAGNESIUM
     Indication: Gastrooesophageal reflux disease
     Dosage: GENERIC
     Route: 065
     Dates: start: 20130808
  6. PRILOSEC [Suspect]
     Active Substance: OMEPRAZOLE MAGNESIUM
     Indication: Gastrooesophageal reflux disease
     Route: 048
     Dates: start: 1999, end: 2011
  7. PRILOSEC [Suspect]
     Active Substance: OMEPRAZOLE MAGNESIUM
     Indication: Gastrooesophageal reflux disease
     Route: 048
     Dates: start: 20121227
  8. PRILOSEC [Suspect]
     Active Substance: OMEPRAZOLE MAGNESIUM
     Indication: Gastrooesophageal reflux disease
     Dosage: GENERIC
     Route: 065
     Dates: start: 20140203
  9. PROTONIX [Suspect]
     Active Substance: PANTOPRAZOLE SODIUM
     Indication: Gastrooesophageal reflux disease
     Route: 065
     Dates: start: 2005, end: 2008
  10. PROTONIX [Suspect]
     Active Substance: PANTOPRAZOLE SODIUM
     Indication: Gastrooesophageal reflux disease
     Dosage: GENERIC
     Route: 065
     Dates: start: 2010, end: 2011
  11. PROTONIX [Suspect]
     Active Substance: PANTOPRAZOLE SODIUM
     Indication: Gastrooesophageal reflux disease
     Dosage: GENERIC
     Route: 065
     Dates: start: 2016, end: 2016
  12. GLIPIZIDE [Concomitant]
     Active Substance: GLIPIZIDE
     Indication: Diabetes mellitus
  13. K-DUR [Concomitant]
     Active Substance: POTASSIUM CHLORIDE
     Indication: Supplementation therapy
  14. PREDNISONE [Concomitant]
     Active Substance: PREDNISONE
     Indication: Steroid therapy
  15. AMBIEN [Concomitant]
     Active Substance: ZOLPIDEM TARTRATE
     Indication: Sleep disorder
  16. PAXIL [Concomitant]
     Active Substance: PAROXETINE HYDROCHLORIDE
     Indication: Affective disorder
  17. PREMARIN [Concomitant]
     Active Substance: ESTROGENS, CONJUGATED
     Indication: Hormone therapy
  18. METOCLOPRAMIDE [Concomitant]
     Active Substance: METOCLOPRAMIDE
     Indication: Gastrointestinal motility disorder
  19. RANITIDINE [Concomitant]
     Active Substance: RANITIDINE
  20. LISINOPRIL [Concomitant]
     Active Substance: LISINOPRIL
  21. INSULIN NOS [Concomitant]
     Active Substance: INSULIN NOS
  22. ATENOLOL [Concomitant]
     Active Substance: ATENOLOL
  23. WELCHOL [Concomitant]
     Active Substance: COLESEVELAM HYDROCHLORIDE
  24. FISH OIL [Concomitant]
     Active Substance: FISH OIL
  25. VITAMIN C [Concomitant]
     Active Substance: ASCORBIC ACID
  26. ZITHROMAX [Concomitant]
     Active Substance: AZITHROMYCIN DIHYDRATE
  27. NITROGLYCERIN [Concomitant]
     Active Substance: NITROGLYCERIN
  28. ZOCOR [Concomitant]
     Active Substance: SIMVASTATIN
  29. VALTREX [Concomitant]
     Active Substance: VALACYCLOVIR HYDROCHLORIDE
  30. CYCLOBENZAPRINE [Concomitant]
     Active Substance: CYCLOBENZAPRINE
  31. LOSARTAN [Concomitant]
     Active Substance: LOSARTAN
  32. CITALOPRAM [Concomitant]
     Active Substance: CITALOPRAM HYDROBROMIDE
  33. PRAVASTATIN [Concomitant]
     Active Substance: PRAVASTATIN
  34. CHLORTHALIDONE [Concomitant]
     Active Substance: CHLORTHALIDONE
  35. GABAPENTIN [Concomitant]
     Active Substance: GABAPENTIN
  36. FOLIC ACID [Concomitant]
     Active Substance: FOLIC ACID
  37. ISOSORBIDE [Concomitant]
     Active Substance: ISOSORBIDE
  38. FLUTICASONE [Concomitant]
     Active Substance: FLUTICASONE
  39. VENOFER [Concomitant]
     Active Substance: IRON SUCROSE
  40. ZOFRAN [Concomitant]
     Active Substance: ONDANSETRON HYDROCHLORIDE
  41. AURYXIA [Concomitant]
     Active Substance: TETRAFERRIC TRICITRATE DECAHYDRATE
  42. BUPROPION [Concomitant]
     Active Substance: BUPROPION
  43. CEPHALEXIN [Concomitant]
     Active Substance: CEPHALEXIN
  44. EPOGEN [Concomitant]
     Active Substance: ERYTHROPOIETIN
  45. METOPROLOL SUCCINATE [Concomitant]
     Active Substance: METOPROLOL SUCCINATE
  46. MUPIROCIN [Concomitant]
     Active Substance: MUPIROCIN
  47. PROAIR HFA [Concomitant]
     Active Substance: ALBUTEROL SULFATE
  48. PROBIOTICS NOS [Concomitant]
     Active Substance: PROBIOTICS NOS
  49. ASCORBIC ACID\BIOTIN\CALCIUM PANTOTHENATE\CYANOCOBALAMIN\FOLIC ACID\NI [Concomitant]
     Active Substance: ASCORBIC ACID\BIOTIN\CALCIUM PANTOTHENATE\CYANOCOBALAMIN\FOLIC ACID\NIACINAMIDE\PYRIDOXINE HYDROCHLO
  50. VITAMIN D [Concomitant]
     Active Substance: VITAMIN D NOS
  51. LYRICA [Concomitant]
     Active Substance: PREGABALIN
     Indication: Affective disorder
  52. CLINDAMYCIN [Concomitant]
     Active Substance: CLINDAMYCIN
     Indication: Affective disorder
  53. METFORMIN [Concomitant]
     Active Substance: METFORMIN HYDROCHLORIDE
  54. BACLOFEN [Concomitant]
     Active Substance: BACLOFEN
  55. CELEBREX [Concomitant]
     Active Substance: CELECOXIB
  56. TEKTURNA [Concomitant]
     Active Substance: ALISKIREN HEMIFUMARATE
  57. FENTANYL [Concomitant]
     Active Substance: FENTANYL
  58. IMITREX [Concomitant]
     Active Substance: SUMATRIPTAN SUCCINATE
  59. SERZONE [Concomitant]
     Active Substance: NEFAZODONE HYDROCHLORIDE
  60. BENZONATATE [Concomitant]
     Active Substance: BENZONATATE
  61. LORATADINE [Concomitant]
     Active Substance: LORATADINE
  62. FOSRENOL [Concomitant]
     Active Substance: LANTHANUM CARBONATE
  63. MINOXIDIL [Concomitant]
     Active Substance: MINOXIDIL
     Dates: start: 20130617
  64. LABETALOL [Concomitant]
     Active Substance: LABETALOL\LABETALOL HYDROCHLORIDE
  65. METHYLPREDNISOLONE [Concomitant]
     Active Substance: METHYLPREDNISOLONE
  66. MIDAZOLAM [Concomitant]
     Active Substance: MIDAZOLAM
  67. CONSTULOSE [Concomitant]
     Active Substance: LACTULOSE
  68. ESCITALOPRAM [Concomitant]
     Active Substance: ESCITALOPRAM OXALATE
  69. MIDODRINE [Concomitant]
     Active Substance: MIDODRINE
  70. OLANZAPINE [Concomitant]
     Active Substance: OLANZAPINE
  71. EZETIMIBE [Concomitant]
     Active Substance: EZETIMIBE
  72. GELSYN [Concomitant]
  73. PHILLIP STOOL SOFTENER [Concomitant]
  74. DILAUDID [Concomitant]
     Active Substance: HYDROMORPHONE HYDROCHLORIDE
  75. ISOSORBIDE MONONITRATE [Concomitant]
     Active Substance: ISOSORBIDE MONONITRATE
  76. WELLBUTRIN [Concomitant]
     Active Substance: BUPROPION HYDROCHLORIDE
  77. AUGMENTIN [Concomitant]
     Active Substance: AMOXICILLIN\CLAVULANATE POTASSIUM
  78. CINACALCET [Concomitant]
     Active Substance: CINACALCET
     Dates: start: 20190912
  79. HEPARIN [Concomitant]
     Active Substance: HEPARIN SODIUM
  80. CALCITRIOL [Concomitant]
     Active Substance: CALCITRIOL
  81. CARAFATE [Concomitant]
     Active Substance: SUCRALFATE
  82. METOLAZONE [Concomitant]
     Active Substance: METOLAZONE
  83. SACCHAROMYCES CEREVISIAE [Concomitant]
     Active Substance: SACCHAROMYCES CEREVISIAE
  84. PIPERACILLIN AND TAZOBACTAM [Concomitant]
     Active Substance: PIPERACILLIN SODIUM\TAZOBACTAM SODIUM

REACTIONS (8)
  - Acute kidney injury [Unknown]
  - Chronic kidney disease [Not Recovered/Not Resolved]
  - Renal failure [Unknown]
  - Chronic kidney disease-mineral and bone disorder [Unknown]
  - End stage renal disease [Unknown]
  - Renal impairment [Unknown]
  - Nephrogenic anaemia [Unknown]
  - Hypervolaemia [Unknown]

NARRATIVE: CASE EVENT DATE: 20121227
